FAERS Safety Report 19821083 (Version 1)
Quarter: 2021Q3

REPORT INFORMATION
  Report Type: Spontaneous
  Country: US (occurrence: US)
  Receive Date: 20210909
  Receipt Date: 20210909
  Transmission Date: 20211014
  Serious: No
  Sender: FDA-Public Use
  Company Number: None

PATIENT
  Sex: Female

DRUGS (2)
  1. VICTOZA [Suspect]
     Active Substance: LIRAGLUTIDE
     Indication: LIPODYSTROPHY ACQUIRED
     Route: 058
     Dates: start: 202103
  2. VICTOZA [Suspect]
     Active Substance: LIRAGLUTIDE
     Indication: HIV INFECTION
     Route: 058
     Dates: start: 202103

REACTIONS (2)
  - Device malfunction [None]
  - Therapy interrupted [None]
